FAERS Safety Report 6507996-2 (Version None)
Quarter: 2009Q4

REPORT INFORMATION
  Report Type: 
  Country: None (occurrence: None)
  Receive Date: 20091221
  Receipt Date: 20091209
  Transmission Date: 20100525
  Serious: Yes (Other)
  Sender: FDA-Public Use
  Company Number: CHPA2009DE22416

PATIENT
  Age: 62 Year
  Sex: Male

DRUGS (4)
  1. NICOTINELL TTS (NCH) [Suspect]
     Indication: SMOKING CESSATION THERAPY
     Dosage: 21 MG, QD
     Route: 062
     Dates: start: 20091119, end: 20091119
  2. NICOTINELL TTS (NCH) [Suspect]
     Dosage: 7 MG, QD
     Route: 062
     Dates: start: 20091101
  3. NOVAMINSULFON-RATIOPHARM [Concomitant]
     Dosage: 30 GTT, TID
  4. PANTOZOL [Concomitant]
     Dosage: 1 DF, QD

REACTIONS (2)
  - BLOOD PRESSURE DECREASED [None]
  - LOSS OF CONSCIOUSNESS [None]
